FAERS Safety Report 19080604 (Version 1)
Quarter: 2021Q1

REPORT INFORMATION
  Report Type: Spontaneous
  Country: FR (occurrence: FR)
  Receive Date: 20210331
  Receipt Date: 20210331
  Transmission Date: 20210420
  Serious: Yes (Hospitalization)
  Sender: FDA-Public Use
  Company Number: FR-009507513-2103FRA007834

PATIENT
  Age: 63 Year
  Sex: Male
  Weight: 86 kg

DRUGS (6)
  1. DAPTOMYCIN. [Suspect]
     Active Substance: DAPTOMYCIN
     Indication: DEVICE RELATED INFECTION
     Route: 041
     Dates: start: 20210211, end: 20210224
  2. TAZOBACTAM [Suspect]
     Active Substance: TAZOBACTAM
     Indication: DEVICE RELATED INFECTION
     Dosage: UNK
     Route: 041
     Dates: start: 20210216, end: 20210224
  3. PIPERACILLIN. [Suspect]
     Active Substance: PIPERACILLIN SODIUM
     Indication: DEVICE RELATED INFECTION
     Dosage: UNK
     Route: 041
     Dates: start: 20210216, end: 20210224
  4. TEICOPLANIN [Suspect]
     Active Substance: TEICOPLANIN
     Indication: DEVICE RELATED INFECTION
     Dosage: UNK
     Route: 041
     Dates: start: 20210129, end: 20210210
  5. PANTOPRAZOLE [Suspect]
     Active Substance: PANTOPRAZOLE
     Indication: GASTRIC ULCER
     Dosage: UNK
     Route: 048
  6. CIPROFLOXACIN. [Suspect]
     Active Substance: CIPROFLOXACIN
     Indication: DEVICE RELATED INFECTION
     Dosage: UNK
     Route: 041
     Dates: start: 20210211, end: 20210224

REACTIONS (1)
  - Hepatitis cholestatic [Recovering/Resolving]

NARRATIVE: CASE EVENT DATE: 20210223
